FAERS Safety Report 5936745-1 (Version None)
Quarter: 2008Q4

REPORT INFORMATION
  Report Type: 
  Country: None (occurrence: None)
  Receive Date: 20081029
  Receipt Date: 20081021
  Transmission Date: 20090506
  Serious: Yes (Other)
  Sender: FDA-Public Use
  Company Number: 030535

PATIENT
  Sex: Male

DRUGS (1)
  1. CLARAVIS [Suspect]
     Indication: ACNE
     Dosage: 60 MG, QD, ORAL
     Route: 048
     Dates: start: 20071101

REACTIONS (2)
  - PATERNAL DRUGS AFFECTING FOETUS [None]
  - PREGNANCY OF PARTNER [None]
